FAERS Safety Report 4350765-2 (Version None)
Quarter: 2004Q2

REPORT INFORMATION
  Report Type: 
  Country: None (occurrence: None)
  Receive Date: 20040427
  Receipt Date: 20040407
  Transmission Date: 20050107
  Serious: Yes (Other)
  Sender: FDA-Public Use
  Company Number: DSA_24211_2004

PATIENT
  Age: 45 Year
  Sex: Female
  Weight: 65.7716 kg

DRUGS (3)
  1. CARDIZEM LA [Suspect]
     Indication: HYPERTENSION
     Dosage: 180 MG Q DAY PO
     Route: 048
     Dates: start: 20040308, end: 20040405
  2. CARDIZEM LA [Suspect]
     Indication: RAYNAUD'S PHENOMENON
     Dosage: 180 MG Q DAY PO
     Route: 048
     Dates: start: 20040308, end: 20040405
  3. LIPITOR [Concomitant]

REACTIONS (1)
  - DRUG HYPERSENSITIVITY [None]
